FAERS Safety Report 8268047-5 (Version None)
Quarter: 2012Q2

REPORT INFORMATION
  Report Type: 
  Country: None (occurrence: None)
  Receive Date: 20120409
  Receipt Date: 20120329
  Transmission Date: 20120825
  Serious: Yes (Hospitalization, Other)
  Sender: FDA-Public Use
  Company Number: DE-ASTRAZENECA-2012SE19255

PATIENT
  Age: 61 Year
  Sex: Female

DRUGS (2)
  1. SEROQUEL [Suspect]
     Route: 048
     Dates: start: 20110901
  2. SEROQUEL [Suspect]
     Indication: BURNOUT SYNDROME
     Route: 048
     Dates: start: 20110901, end: 20120201

REACTIONS (8)
  - HAND FRACTURE [None]
  - FALL [None]
  - SYNCOPE [None]
  - JAW FRACTURE [None]
  - LOWER LIMB FRACTURE [None]
  - FACIAL BONES FRACTURE [None]
  - HAEMATOMA [None]
  - OFF LABEL USE [None]
